FAERS Safety Report 23276854 (Version 1)
Quarter: 2023Q4

REPORT INFORMATION
  Report Type: Spontaneous
  Country: JP (occurrence: JP)
  Receive Date: 20231208
  Receipt Date: 20231208
  Transmission Date: 20240110
  Serious: Yes (Hospitalization, Other)
  Sender: FDA-Public Use
  Company Number: JP-ORPHANEU-2023008581

PATIENT

DRUGS (3)
  1. ISTURISA [Suspect]
     Active Substance: OSILODROSTAT PHOSPHATE
     Indication: Cushing^s syndrome
     Dosage: UNK
     Route: 065
  2. METYRAPONE [Concomitant]
     Active Substance: METYRAPONE
     Indication: Cortisol abnormal
     Dosage: UNK
  3. CORTRIL [Concomitant]
     Active Substance: HYDROCORTISONE
     Indication: Adrenal suppression
     Dosage: UNK
     Route: 048

REACTIONS (3)
  - Impaired gastric emptying [Unknown]
  - Pancreatic neuroendocrine tumour [Unknown]
  - Cortisol decreased [Unknown]
